FAERS Safety Report 9287321 (Version 2)
Quarter: 2013Q2

REPORT INFORMATION
  Report Type: Spontaneous
  Country: US (occurrence: US)
  Receive Date: 20130514
  Receipt Date: 20130530
  Transmission Date: 20140414
  Serious: No
  Sender: FDA-Public Use
  Company Number: US-009507513-1305USA000638

PATIENT
  Sex: Female
  Weight: 65 kg

DRUGS (3)
  1. REBETOL [Suspect]
     Indication: HEPATITIS C
     Dosage: 200 MG, 3 TABS QAM. 2 TABS QPM
     Dates: start: 20130412
  2. PEGASYS [Suspect]
     Indication: HEPATITIS C
     Dosage: 180 MG, QW
     Route: 058
     Dates: start: 20130412
  3. VICTRELIS [Suspect]
     Dosage: 200 MG, UNK
     Route: 048
     Dates: start: 20130511

REACTIONS (9)
  - Dry mouth [Not Recovered/Not Resolved]
  - Dehydration [Not Recovered/Not Resolved]
  - Thirst [Unknown]
  - Memory impairment [Not Recovered/Not Resolved]
  - Fatigue [Not Recovered/Not Resolved]
  - Decreased appetite [Unknown]
  - Dysgeusia [Not Recovered/Not Resolved]
  - Headache [Unknown]
  - Nausea [Unknown]
